FAERS Safety Report 8574575-5 (Version None)
Quarter: 2012Q3

REPORT INFORMATION
  Report Type: 
  Country: None (occurrence: None)
  Receive Date: 20120806
  Receipt Date: 20120724
  Transmission Date: 20120928
  Serious: Yes (Other)
  Sender: FDA-Public Use
  Company Number: US-MYLANLABS-2012S1015222

PATIENT
  Age: 28 Year
  Sex: Female

DRUGS (4)
  1. NAPROXEN [Concomitant]
     Route: 065
  2. ESCITALOPRAM [Concomitant]
     Route: 065
  3. OMEPRAZOLE [Concomitant]
     Route: 065
  4. TRAMADOL HCL [Suspect]
     Indication: INTENTIONAL DRUG MISUSE
     Dosage: APPROXIMATELY 600-800MG PER DAY FOR PAST 2 D
     Route: 065

REACTIONS (7)
  - POSTICTAL STATE [None]
  - TACHYCARDIA [None]
  - INTENTIONAL DRUG MISUSE [None]
  - COMPLEX PARTIAL SEIZURES [None]
  - CONFUSIONAL STATE [None]
  - DRUG SCREEN FALSE POSITIVE [None]
  - TOXICITY TO VARIOUS AGENTS [None]
